FAERS Safety Report 21162752 (Version 1)
Quarter: 2022Q3

REPORT INFORMATION
  Report Type: Spontaneous
  Country: US (occurrence: None)
  Receive Date: 20220802
  Receipt Date: 20220802
  Transmission Date: 20221026
  Serious: Yes (Other)
  Sender: FDA-Public Use
  Company Number: None

PATIENT

DRUGS (1)
  1. TRINTELLIX [Suspect]
     Active Substance: VORTIOXETINE HYDROBROMIDE

REACTIONS (6)
  - Dizziness [None]
  - Vomiting [None]
  - Taste disorder [None]
  - Product contamination physical [None]
  - Abdominal discomfort [None]
  - Feeling abnormal [None]
